FAERS Safety Report 8540456-6 (Version None)
Quarter: 2012Q3

REPORT INFORMATION
  Report Type: 
  Country: None (occurrence: None)
  Receive Date: 20120726
  Receipt Date: 20110719
  Transmission Date: 20120928
  Serious: No
  Sender: FDA-Public Use
  Company Number: US-ASTRAZENECA-2011SE43010

PATIENT
  Sex: Female

DRUGS (3)
  1. SEROQUEL [Suspect]
     Indication: BIPOLAR DISORDER
     Route: 048
     Dates: end: 20110717
  2. ZOMIG [Concomitant]
  3. SEROQUEL [Suspect]
     Indication: INSOMNIA
     Route: 048
     Dates: end: 20110717

REACTIONS (4)
  - MALAISE [None]
  - DRUG DOSE OMISSION [None]
  - FEELING ABNORMAL [None]
  - ANXIETY [None]
